FAERS Safety Report 6171641-9 (Version None)
Quarter: 2009Q2

REPORT INFORMATION
  Report Type: 
  Country: None (occurrence: None)
  Receive Date: 20090424
  Receipt Date: 20081201
  Transmission Date: 20091009
  Serious: No
  Sender: FDA-Public Use
  Company Number: SPV1-2008-02654

PATIENT
  Age: 12 Year
  Sex: Male
  Weight: 46.3 kg

DRUGS (3)
  1. VYVANSE [Suspect]
     Indication: ATTENTION DEFICIT/HYPERACTIVITY DISORDER
     Dosage: 100 MG, 1X/DAY; QD, ORAL
     Route: 048
     Dates: start: 20080901, end: 20081126
  2. ZYRTEC [Concomitant]
  3. SINGULAIR [Concomitant]

REACTIONS (2)
  - INSOMNIA [None]
  - OVERDOSE [None]
